FAERS Safety Report 5241721-0 (Version None)
Quarter: 2007Q1

REPORT INFORMATION
  Report Type: 
  Country: None (occurrence: None)
  Receive Date: 20070220
  Receipt Date: 20070212
  Transmission Date: 20070707
  Serious: Yes (Hospitalization)
  Sender: FDA-Public Use
  Company Number: US-ELI_LILLY_AND_COMPANY-US200611002119

PATIENT
  Age: 81 Year
  Sex: Male

DRUGS (10)
  1. FORTEO [Suspect]
     Indication: OSTEOPOROSIS
     Dosage: UNK, UNK
     Dates: start: 20060901, end: 20061018
  2. GLIPIZIDE [Concomitant]
  3. SIMVASTATIN [Concomitant]
  4. COUMADIN [Concomitant]
  5. ACTOS /USA/ [Concomitant]
  6. OMEPRAZOLE [Concomitant]
  7. ATENOLOL [Concomitant]
  8. LISINOPRIL [Concomitant]
  9. IMDUR [Concomitant]
  10. MECLIZINE [Concomitant]

REACTIONS (2)
  - DRY MOUTH [None]
  - VASCULAR ENCEPHALOPATHY [None]
